FAERS Safety Report 14338829 (Version 3)
Quarter: 2018Q1

REPORT INFORMATION
  Report Type: Spontaneous
  Country: US (occurrence: US)
  Receive Date: 20171229
  Receipt Date: 20180126
  Transmission Date: 20180509
  Serious: Yes (Other)
  Sender: FDA-Public Use
  Company Number: US-SUNOVION-2017SUN005417

PATIENT
  Sex: Female

DRUGS (1)
  1. APTIOM [Suspect]
     Active Substance: ESLICARBAZEPINE ACETATE
     Indication: SEIZURE
     Dosage: 400 MG, QD
     Route: 048

REACTIONS (6)
  - Poor quality sleep [Recovering/Resolving]
  - Photopsia [Recovering/Resolving]
  - Seizure [Not Recovered/Not Resolved]
  - Epistaxis [Recovered/Resolved]
  - Dizziness [Recovering/Resolving]
  - Tension headache [Recovered/Resolved]

NARRATIVE: CASE EVENT DATE: 20180101
